FAERS Safety Report 8367957-8 (Version None)
Quarter: 2012Q2

REPORT INFORMATION
  Report Type: 
  Country: None (occurrence: None)
  Receive Date: 20120517
  Receipt Date: 20120511
  Transmission Date: 20120825
  Serious: Yes (Other)
  Sender: FDA-Public Use
  Company Number: CO-PFIZER INC-2012085349

PATIENT
  Age: 69 Year
  Sex: Female

DRUGS (4)
  1. LYRICA [Suspect]
     Indication: PAIN MANAGEMENT
     Dosage: 75 MG, 1X/DAY
     Route: 048
     Dates: start: 20111201
  2. CALCIUM CARBONATE [Concomitant]
     Dosage: 1 DF, 1X/DAY
     Dates: start: 20070301
  3. LOSARTAN [Concomitant]
     Indication: HYPERTENSION
     Dosage: 5 MG, 1X/DAY
     Route: 048
     Dates: start: 20070301
  4. AMLODIPINE BESILATE [Concomitant]
     Indication: HYPERTENSION
     Dosage: 50 MG, 1X/DAY
     Route: 048
     Dates: start: 20070301

REACTIONS (2)
  - INSOMNIA [None]
  - DRUG DEPENDENCE [None]
